FAERS Safety Report 16807183 (Version 1)
Quarter: 2019Q3

REPORT INFORMATION
  Report Type: Spontaneous
  Country: GB (occurrence: GB)
  Receive Date: 20190913
  Receipt Date: 20190913
  Transmission Date: 20191005
  Serious: Yes (Other)
  Sender: FDA-Public Use
  Company Number: GB-MYLANLABS-2019M1085368

PATIENT
  Age: 25 Year
  Sex: Female
  Weight: 57.15 kg

DRUGS (2)
  1. QUETIAPINE. [Concomitant]
     Active Substance: QUETIAPINE
     Dosage: UNK
  2. SUMATRIPTAN. [Suspect]
     Active Substance: SUMATRIPTAN
     Indication: MIGRAINE
     Dosage: 50 MILLIGRAM
     Route: 048
     Dates: start: 20190328, end: 20190328

REACTIONS (4)
  - Hypoaesthesia [Not Recovered/Not Resolved]
  - Chest pain [Not Recovered/Not Resolved]
  - Headache [Not Recovered/Not Resolved]
  - Malaise [Not Recovered/Not Resolved]

NARRATIVE: CASE EVENT DATE: 20190328
